FAERS Safety Report 17722609 (Version 1)
Quarter: 2020Q2

REPORT INFORMATION
  Report Type: Spontaneous
  Country: US (occurrence: US)
  Receive Date: 20200429
  Receipt Date: 20200429
  Transmission Date: 20200714
  Serious: Yes (Hospitalization)
  Sender: FDA-Public Use
  Company Number: US-PFIZER INC-2020170939

PATIENT
  Age: 73 Year
  Sex: Female
  Weight: 97.51 kg

DRUGS (1)
  1. TIKOSYN [Suspect]
     Active Substance: DOFETILIDE
     Indication: ATRIAL FIBRILLATION
     Dosage: UNK
     Dates: start: 201808

REACTIONS (4)
  - Pain in extremity [Unknown]
  - Urinary tract infection [Unknown]
  - Somnolence [Unknown]
  - Joint abscess [Unknown]

NARRATIVE: CASE EVENT DATE: 202004
